FAERS Safety Report 25331252 (Version 4)
Quarter: 2025Q2

REPORT INFORMATION
  Report Type: Spontaneous
  Country: CA (occurrence: CA)
  Receive Date: 20250519
  Receipt Date: 20250611
  Transmission Date: 20250717
  Serious: No
  Sender: PFIZER
  Company Number: CA-PFIZER INC-202500101928

PATIENT
  Age: 65 Year
  Sex: Female

DRUGS (13)
  1. RUXIENCE [Suspect]
     Active Substance: RITUXIMAB-PVVR
     Indication: Rheumatoid arthritis
     Route: 042
     Dates: start: 20240408, end: 20240422
  2. RUXIENCE [Suspect]
     Active Substance: RITUXIMAB-PVVR
     Route: 042
     Dates: start: 20241023
  3. RUXIENCE [Suspect]
     Active Substance: RITUXIMAB-PVVR
     Route: 042
     Dates: start: 20241107
  4. RUXIENCE [Suspect]
     Active Substance: RITUXIMAB-PVVR
     Route: 042
     Dates: start: 20250513
  5. RUXIENCE [Suspect]
     Active Substance: RITUXIMAB-PVVR
     Route: 042
     Dates: start: 20250527
  6. CITALOPRAM [Concomitant]
     Active Substance: CITALOPRAM
  7. ESOMEPRAZOLE [Concomitant]
     Active Substance: ESOMEPRAZOLE
  8. JAMP CALCIUM + VITAMIN D [Concomitant]
  9. NICODERM CQ [Concomitant]
     Active Substance: NICOTINE
  10. ORPHENADRINE [Concomitant]
     Active Substance: ORPHENADRINE
  11. ALBUTEROL [Concomitant]
     Active Substance: ALBUTEROL
  12. THRIVE COMPLETE [Concomitant]
  13. ZENHALE [Concomitant]
     Active Substance: FORMOTEROL FUMARATE\MOMETASONE FUROATE

REACTIONS (4)
  - Tooth fracture [Not Recovered/Not Resolved]
  - Headache [Recovering/Resolving]
  - Vitreous floaters [Recovering/Resolving]
  - Ocular discomfort [Not Recovered/Not Resolved]

NARRATIVE: CASE EVENT DATE: 20250513
